FAERS Safety Report 4487465-4 (Version None)
Quarter: 2004Q3

REPORT INFORMATION
  Report Type: 
  Country: None (occurrence: None)
  Receive Date: 20040921
  Receipt Date: 20040427
  Transmission Date: 20050211
  Serious: Yes (Hospitalization)
  Sender: FDA-Public Use
  Company Number: 163-20785-04040670(0)

PATIENT
  Age: 84 Year
  Sex: Male
  Weight: 64 kg

DRUGS (10)
  1. THALOMID [Suspect]
     Indication: PROSTATE CANCER
     Dosage: 100 MG, TID 3DAYS/WK, ORAL
     Route: 048
     Dates: start: 20040414, end: 20040425
  2. EMCYT [Suspect]
     Indication: PROSTATE CANCER
     Dosage: 140 MG, TID 3DAYS/WK, ORAL
     Route: 048
     Dates: start: 20040414, end: 20040423
  3. PROSCAR [Concomitant]
  4. COUMADIN [Concomitant]
  5. LANOXIN [Concomitant]
  6. VIOXX [Concomitant]
  7. LUPRON [Concomitant]
  8. OXYCONTIN [Concomitant]
  9. FLOMAX [Concomitant]
  10. TAXOTERE [Concomitant]

REACTIONS (2)
  - CARDIAC FAILURE CONGESTIVE [None]
  - PNEUMONIA [None]
